FAERS Safety Report 12215381 (Version 1)
Quarter: 2016Q1

REPORT INFORMATION
  Report Type: Spontaneous
  Country: US (occurrence: US)
  Receive Date: 20160328
  Receipt Date: 20160328
  Transmission Date: 20160526
  Serious: Yes (Other)
  Sender: FDA-Public Use
  Company Number: US-PFIZER INC-2016165352

PATIENT
  Age: 62 Year
  Sex: Female

DRUGS (15)
  1. LYRICA [Suspect]
     Active Substance: PREGABALIN
     Dosage: 150 MG, 2X/DAY (2 TIMES EVERY DAY)
     Route: 048
     Dates: start: 20150618
  2. HYDROCODONE BITARTRATE AND ACETAMINOPHEN [Concomitant]
     Active Substance: ACETAMINOPHEN\HYDROCODONE BITARTRATE
     Indication: PAIN
     Dosage: (HYDROCODONE BITARTRATE: 10 MG, PARACETAMOL: 325 MG), EVERY 4-6 HOURS AS NEEDED
     Route: 048
     Dates: start: 20151221, end: 20151221
  3. ENALAPRIL MALEATE. [Concomitant]
     Active Substance: ENALAPRIL MALEATE
     Dosage: 20 MG, UNK (1 TABLET BY ORAL ROUTE EVERY 2 DAYS)
     Route: 048
     Dates: start: 20151221
  4. KEFLEX [Concomitant]
     Active Substance: CEPHALEXIN
     Dosage: 500 MG, 2X/DAY
     Route: 048
     Dates: start: 20150812, end: 20160107
  5. METOPROLOL TARTRATE. [Concomitant]
     Active Substance: METOPROLOL TARTRATE
     Dosage: 100 MG, 2X/DAY
     Route: 048
     Dates: start: 20150730, end: 20160107
  6. POTASSIUM CHLORIDE. [Concomitant]
     Active Substance: POTASSIUM CHLORIDE
     Dosage: 8 MEQ, 2X/DAY (2 TIMES EVERY DAY WITH FOOD)
     Route: 048
     Dates: start: 20151029
  7. AMLODIPINE [Concomitant]
     Active Substance: AMLODIPINE BESYLATE
     Dosage: 25 MG, DAILY
     Route: 048
     Dates: start: 20151123
  8. LASIX [Concomitant]
     Active Substance: FUROSEMIDE
     Dosage: UNK (1/2 OF PILL ON TUESDAY, THURSDAY SATURDAY AND ONE PILL ON MONDAY, WEDNESDAY, FRIDAY,  SUNDAY)
     Dates: start: 20151201
  9. ACETAZOLAMIDE. [Concomitant]
     Active Substance: ACETAZOLAMIDE
     Dosage: 250 MG, DAILY (TAKE 1 TABLET BY ORAL ROUTE EVERY DAY)
     Route: 048
     Dates: start: 20150612
  10. ZOFRAN [Concomitant]
     Active Substance: ONDANSETRON HYDROCHLORIDE
     Dosage: 4 MG, 3X/DAY (1 TABLET BY ORAL  ROUTE 3 TIMES EVERY DAY)
     Route: 048
     Dates: start: 20150625, end: 20160107
  11. VITAMIN D2 [Concomitant]
     Active Substance: ERGOCALCIFEROL
     Dosage: 50000 IU, WEEKLY
     Route: 048
     Dates: start: 20150907
  12. CIPRO [Concomitant]
     Active Substance: CIPROFLOXACIN HYDROCHLORIDE
     Dosage: 250 MG, 2X/DAY
     Route: 048
     Dates: start: 20151124, end: 20160107
  13. LOVASTATIN. [Concomitant]
     Active Substance: LOVASTATIN
     Dosage: 20 MG, DAILY (L TABLET BY ORAL ROUTE EVERY DAY WITH THE EVENING MEAL)
     Route: 048
     Dates: start: 20151215
  14. AMBIEN [Concomitant]
     Active Substance: ZOLPIDEM TARTRATE
     Dosage: 10 MG, EVERY DAY AT BEDTIME AS NEEDED
     Route: 048
     Dates: start: 20151231, end: 20160128
  15. FLUZONE INTRADERM QUAD 2015-2016 (PF) [Concomitant]
     Dosage: UNK (36 MCG/0.1 ML INTRADERMAL SYRINGE)
     Route: 023
     Dates: start: 20151216

REACTIONS (29)
  - Pulmonary hypertension [Unknown]
  - Aortic aneurysm [Unknown]
  - Depression [Unknown]
  - Nasal septum deviation [Unknown]
  - Systemic lupus erythematosus [Unknown]
  - Decreased interest [Unknown]
  - Pain in extremity [Unknown]
  - Anaemia [Unknown]
  - Vision blurred [Unknown]
  - Suicidal ideation [Unknown]
  - Condition aggravated [Unknown]
  - Irritability [Unknown]
  - Atrial flutter [Unknown]
  - Nasal congestion [Unknown]
  - Back pain [Unknown]
  - Insomnia [Unknown]
  - Activities of daily living impaired [Unknown]
  - Headache [Unknown]
  - Pollakiuria [Unknown]
  - Hypertension [Unknown]
  - Condition aggravated [Unknown]
  - Rhinorrhoea [Unknown]
  - Facial pain [Unknown]
  - Chronic respiratory failure [Unknown]
  - Anhedonia [Unknown]
  - Sleep apnoea syndrome [Unknown]
  - Fatigue [Unknown]
  - Pain [Unknown]
  - Disturbance in attention [Unknown]

NARRATIVE: CASE EVENT DATE: 20160107
